FAERS Safety Report 9112161 (Version 1)
Quarter: 2013Q1

REPORT INFORMATION
  Report Type: Spontaneous
  Country: US (occurrence: US)
  Receive Date: 20130219
  Receipt Date: 20130219
  Transmission Date: 20140127
  Serious: No
  Sender: FDA-Public Use
  Company Number: US-BRISTOL-MYERS SQUIBB COMPANY-16696866

PATIENT
  Age: 48 Year
  Sex: Female

DRUGS (3)
  1. ORENCIA [Suspect]
     Indication: RHEUMATOID ARTHRITIS
     Dosage: LAST DATE OF INFUSION:30JUL2012
     Route: 042
     Dates: start: 20120312
  2. MEDROL [Concomitant]
     Route: 048
  3. ARAVA [Concomitant]
     Dosage: 1 DF: 2TABS 10MG
     Route: 048

REACTIONS (3)
  - Chronic obstructive pulmonary disease [Not Recovered/Not Resolved]
  - Psoriasis [Unknown]
  - Drug ineffective [Unknown]
